FAERS Safety Report 6997771-7 (Version None)
Quarter: 2010Q3

REPORT INFORMATION
  Report Type: 
  Country: None (occurrence: None)
  Receive Date: 20100920
  Receipt Date: 20100908
  Transmission Date: 20110219
  Serious: Yes (Hospitalization)
  Sender: FDA-Public Use
  Company Number: US-BIOGENIDEC-2010BI013123

PATIENT
  Age: 46 Year
  Sex: Female

DRUGS (2)
  1. TYSABRI [Suspect]
     Indication: MULTIPLE SCLEROSIS
     Route: 042
     Dates: start: 20071206, end: 20081219
  2. TYSABRI [Suspect]
     Route: 042
     Dates: start: 20090130, end: 20100701

REACTIONS (15)
  - ANAL HAEMORRHAGE [None]
  - ARTHROPATHY [None]
  - BALANCE DISORDER [None]
  - DIARRHOEA [None]
  - DIZZINESS [None]
  - FALL [None]
  - FATIGUE [None]
  - GAIT DISTURBANCE [None]
  - HAEMARTHROSIS [None]
  - HAEMORRHOIDS [None]
  - HEADACHE [None]
  - HYPOAESTHESIA [None]
  - MEMORY IMPAIRMENT [None]
  - URTICARIA [None]
  - VISION BLURRED [None]
